FAERS Safety Report 7321728-X (Version None)
Quarter: 2011Q1

REPORT INFORMATION
  Report Type: 
  Country: None (occurrence: None)
  Receive Date: 20110228
  Receipt Date: 20100803
  Transmission Date: 20110831
  Serious: No
  Sender: FDA-Public Use
  Company Number: US-PFIZER INC-2010098170

PATIENT
  Sex: Female
  Weight: 61.678 kg

DRUGS (1)
  1. GEODON [Suspect]
     Indication: FLASHBACK
     Dosage: 20 MG, DAILY
     Route: 048
     Dates: start: 20100730

REACTIONS (1)
  - MALAISE [None]
